FAERS Safety Report 14216642 (Version 11)
Quarter: 2018Q2

REPORT INFORMATION
  Report Type: Spontaneous
  Country: US (occurrence: US)
  Receive Date: 20171122
  Receipt Date: 20180423
  Transmission Date: 20180711
  Serious: Yes (Hospitalization, Other)
  Sender: FDA-Public Use
  Company Number: US-ACTELION-A-US2017-163046

PATIENT
  Age: 72 Year
  Sex: Female
  Weight: 58.96 kg

DRUGS (3)
  1. OXYGEN. [Concomitant]
     Active Substance: OXYGEN
     Dosage: 2 L/MIN, QPM
  2. WARFARIN [Concomitant]
     Active Substance: WARFARIN
  3. OPSUMIT [Suspect]
     Active Substance: MACITENTAN
     Indication: PULMONARY ARTERIAL HYPERTENSION
     Dosage: 10 MG, QD
     Route: 048
     Dates: start: 20171027

REACTIONS (22)
  - Cough [Unknown]
  - Aspartate aminotransferase increased [Not Recovered/Not Resolved]
  - White blood cell count decreased [Unknown]
  - Influenza [Unknown]
  - Animal bite [Unknown]
  - Pyrexia [Unknown]
  - Oxygen saturation decreased [Not Recovered/Not Resolved]
  - Pneumonia [Unknown]
  - Electrocardiogram QT prolonged [Unknown]
  - Gastrointestinal disorder [Unknown]
  - Hepatic enzyme increased [Not Recovered/Not Resolved]
  - Feeling abnormal [Not Recovered/Not Resolved]
  - Red blood cell count decreased [Unknown]
  - Chest pain [Unknown]
  - Liver disorder [Unknown]
  - Cardiac disorder [Unknown]
  - Headache [Unknown]
  - Haemoglobin decreased [Not Recovered/Not Resolved]
  - Pharyngitis [Unknown]
  - Alanine aminotransferase increased [Not Recovered/Not Resolved]
  - Arrhythmia [Unknown]
  - Palpitations [Unknown]

NARRATIVE: CASE EVENT DATE: 201711
